FAERS Safety Report 24658715 (Version 2)
Quarter: 2024Q4

REPORT INFORMATION
  Report Type: Spontaneous
  Country: JP (occurrence: JP)
  Receive Date: 20241125
  Receipt Date: 20241205
  Transmission Date: 20250115
  Serious: Yes (Other)
  Sender: TERSERA THERAPEUTICS
  Company Number: JP-ASTRAZENECA-240127207_010210_P_1

PATIENT

DRUGS (3)
  1. GOSERELIN [Suspect]
     Active Substance: GOSERELIN
     Indication: Product used for unknown indication
     Dosage: DOSE UNKNOWN
     Route: 058
  2. GOSERELIN [Suspect]
     Active Substance: GOSERELIN
     Dosage: DOSE UNKNOWN
     Route: 058
  3. ZOLADEX [Suspect]
     Active Substance: GOSERELIN ACETATE
     Indication: Product used for unknown indication
     Dosage: UNK
     Route: 065

REACTIONS (1)
  - Gastric cancer [Unknown]
